FAERS Safety Report 16573763 (Version 1)
Quarter: 2019Q3

REPORT INFORMATION
  Report Type: Spontaneous
  Country: GB (occurrence: GB)
  Receive Date: 20190715
  Receipt Date: 20190715
  Transmission Date: 20191004
  Serious: Yes (Life-Threatening, Hospitalization)
  Sender: FDA-Public Use
  Company Number: GB-TEVA-2019-GB-1076754

PATIENT
  Age: 77 Year
  Sex: Female
  Weight: 57.15 kg

DRUGS (2)
  1. IBUPROFEN. [Suspect]
     Active Substance: IBUPROFEN
     Indication: BACK PAIN
     Dosage: APPLIED FOR 3 DAYS, THEN REDUCED TO TWICE A DAY FOLLOWING IMPROVEMENT
     Route: 061
     Dates: start: 20190508
  2. IBUPROFEN. [Suspect]
     Active Substance: IBUPROFEN
     Dosage: APPLIED FOR 3 DAYS, THEN REDUCED TO TWICE A DAY FOLLOWING IMPROVEMENT
     Route: 061
     Dates: start: 20190512

REACTIONS (1)
  - Anaphylactic shock [Recovered/Resolved]

NARRATIVE: CASE EVENT DATE: 20190513
